FAERS Safety Report 4941869-1 (Version None)
Quarter: 2006Q1

REPORT INFORMATION
  Report Type: 
  Country: None (occurrence: None)
  Receive Date: 20060308
  Receipt Date: 20060220
  Transmission Date: 20060701
  Serious: Yes (Congenital Anomaly)
  Sender: FDA-Public Use
  Company Number: DSA_27824_2006

PATIENT
  Sex: Female

DRUGS (6)
  1. ENALAPRIL MALEATE [Suspect]
     Dosage: 5 MG Q DAY TRAN-P
     Route: 064
  2. ENALAPRIL MALEATE [Suspect]
     Dosage: 10 MG Q DAY TRAN-P
     Route: 064
  3. LABETOLOL [Concomitant]
  4. AMILORIDE HCL [Concomitant]
  5. HYDROCHLOROTHIAZIDE [Concomitant]
  6. PRAZOSIN [Concomitant]

REACTIONS (13)
  - CYSTITIS [None]
  - DRUG EXPOSURE DURING PREGNANCY [None]
  - INDUCED LABOUR [None]
  - KIDNEY MALFORMATION [None]
  - METABOLIC ACIDOSIS [None]
  - OLIGOHYDRAMNIOS [None]
  - PH URINE INCREASED [None]
  - PREMATURE BABY [None]
  - PROTEINURIA [None]
  - RENAL FAILURE ACUTE [None]
  - RENAL FAILURE NEONATAL [None]
  - RENAL TUBULAR ACIDOSIS [None]
  - ULTRASOUND SCAN ABNORMAL [None]
